FAERS Safety Report 6712976-8 (Version None)
Quarter: 2010Q2

REPORT INFORMATION
  Report Type: 
  Country: None (occurrence: None)
  Receive Date: 20100505
  Receipt Date: 20100505
  Transmission Date: 20101027
  Serious: No
  Sender: FDA-Public Use
  Company Number: None

PATIENT
  Age: 3 Year
  Sex: Male
  Weight: 15.2 kg

DRUGS (2)
  1. CHILDREN'S TYLENOL [Suspect]
     Indication: PYREXIA
     Dosage: 240 MG @ EVERY 6-8 HOURS PO
     Route: 048
     Dates: start: 20100422, end: 20100429
  2. CHILDREN'S MOTRIN [Suspect]
     Indication: PYREXIA
     Dosage: 150 MG @ EVERY 8-12 HOURS PO
     Route: 048
     Dates: start: 20100425, end: 20100428

REACTIONS (1)
  - DRUG EFFECT DECREASED [None]
